FAERS Safety Report 6649516-8 (Version None)
Quarter: 2010Q1

REPORT INFORMATION
  Report Type: 
  Country: None (occurrence: None)
  Receive Date: 20100324
  Receipt Date: 20100324
  Transmission Date: 20100710
  Serious: Yes (Disabling)
  Sender: FDA-Public Use
  Company Number: None

PATIENT
  Age: 27 Year
  Sex: Female
  Weight: 56.6996 kg

DRUGS (1)
  1. CIPROFLOXACIN [Suspect]
     Indication: URINARY TRACT INFECTION
     Dosage: 1 TABLET 2/DAY FOR 3 DAYS PO
     Route: 048
     Dates: start: 20100316, end: 20100316

REACTIONS (4)
  - INSOMNIA [None]
  - NERVOUSNESS [None]
  - TENDONITIS [None]
  - TREMOR [None]
